FAERS Safety Report 6236281-1 (Version None)
Quarter: 2009Q2

REPORT INFORMATION
  Report Type: 
  Country: None (occurrence: None)
  Receive Date: 20090619
  Receipt Date: 20090609
  Transmission Date: 20091009
  Serious: Yes (Hospitalization)
  Sender: FDA-Public Use
  Company Number: FR-PFIZER INC-2009224517

PATIENT
  Age: 56 Year

DRUGS (10)
  1. ZAVEDOS [Suspect]
     Indication: ACUTE PROMYELOCYTIC LEUKAEMIA
     Dosage: 68.4 MG, PER DAY
     Route: 042
     Dates: end: 20090328
  2. METHOTREXATE [Suspect]
     Indication: PSORIATIC ARTHROPATHY
     Dosage: 15 MG, WEEKLY
     Route: 048
     Dates: end: 20090122
  3. TAZOCILLINE [Suspect]
     Indication: PROPHYLAXIS
     Dosage: 4 G, 4X/DAY
     Route: 042
     Dates: start: 20090407, end: 20090428
  4. LANZOR [Suspect]
     Indication: GASTRITIS PROPHYLAXIS
     Dosage: UNK
     Dates: end: 20090428
  5. TAHOR [Concomitant]
     Dosage: UNK
  6. VESANOID [Concomitant]
     Indication: ACUTE PROMYELOCYTIC LEUKAEMIA
     Dosage: CAPSULE 10 MG
     Dates: end: 20090401
  7. ASPEGIC 1000 [Concomitant]
     Indication: CORONARY ARTERIAL STENT INSERTION
     Dosage: UNK
     Route: 048
  8. KYTRIL [Concomitant]
     Indication: ANTIEMETIC SUPPORTIVE CARE
     Dosage: UNK
     Dates: start: 20090201
  9. PRIMPERAN [Concomitant]
     Indication: ANTIEMETIC SUPPORTIVE CARE
  10. PERINDOPRIL ERBUMINE [Concomitant]
     Dosage: UNK

REACTIONS (2)
  - BONE MARROW FAILURE [None]
  - DRUG EFFECT PROLONGED [None]
